FAERS Safety Report 6819437-6 (Version None)
Quarter: 2010Q3

REPORT INFORMATION
  Report Type: 
  Country: None (occurrence: None)
  Receive Date: 20100707
  Receipt Date: 20100628
  Transmission Date: 20110219
  Serious: Yes (Other)
  Sender: FDA-Public Use
  Company Number: JP-PFIZER INC-2010068161

PATIENT
  Age: 66 Year
  Sex: Male
  Weight: 58 kg

DRUGS (11)
  1. SUNITINIB MALATE [Suspect]
     Indication: RENAL CELL CARCINOMA
     Dosage: 50 MG, 1X/DAY
     Dates: start: 20081114, end: 20081124
  2. BLOPRESS [Concomitant]
     Dosage: 4 MG, 1X/DAY
     Route: 048
  3. MAG-LAX [Concomitant]
     Dosage: 660 MG, 3X/DAY
     Route: 048
  4. AMARYL [Concomitant]
     Dosage: 1 MG, 1X/DAY
     Route: 048
  5. OXYCONTIN [Concomitant]
     Dosage: 10 MG, 2X/DAY
     Route: 048
  6. AMOBAN [Concomitant]
     Dosage: 7.5 MG, 1X/DAY
     Route: 048
  7. LOXONIN [Concomitant]
     Dosage: 60 MG, 3X/DAY
     Route: 048
  8. DESYREL [Concomitant]
     Dosage: 25 MG, 1X/DAY
  9. MUCOSTA [Concomitant]
     Dosage: 100 MG, 3X/DAY
  10. AMLODIN [Concomitant]
     Dosage: 5 MG, 1X/DAY
  11. PURSENNID [Concomitant]
     Dosage: 24 MG, 1X/DAY

REACTIONS (2)
  - ALTERED STATE OF CONSCIOUSNESS [None]
  - PYREXIA [None]
